FAERS Safety Report 14394207 (Version 1)
Quarter: 2018Q1

REPORT INFORMATION
  Report Type: Spontaneous
  Country: AT (occurrence: AT)
  Receive Date: 20180116
  Receipt Date: 20180116
  Transmission Date: 20180509
  Serious: Yes (Death)
  Sender: FDA-Public Use
  Company Number: AT-TEVA-2018-AT-843096

PATIENT
  Age: 84 Year
  Sex: Male

DRUGS (2)
  1. CAPECITABINE. [Suspect]
     Active Substance: CAPECITABINE
     Route: 065
  2. MEVIR [Interacting]
     Active Substance: BRIVUDINE
     Indication: HERPES ZOSTER
     Route: 065
     Dates: start: 2016, end: 2016

REACTIONS (1)
  - Labelled drug-drug interaction medication error [Fatal]

NARRATIVE: CASE EVENT DATE: 2016
